FAERS Safety Report 10482473 (Version 1)
Quarter: 2014Q3

REPORT INFORMATION
  Report Type: Spontaneous
  Country: JP (occurrence: JP)
  Receive Date: 20140929
  Receipt Date: 20140929
  Transmission Date: 20150326
  Serious: Yes (Other)
  Sender: FDA-Public Use
  Company Number: JP-PFIZER INC-2014265544

PATIENT
  Age: 69 Year
  Sex: Female

DRUGS (6)
  1. CELECOX [Concomitant]
     Active Substance: CELECOXIB
  2. RIVOTRIL [Concomitant]
     Active Substance: CLONAZEPAM
  3. PAXIL [Concomitant]
     Active Substance: PAROXETINE HYDROCHLORIDE
  4. ROPION [Concomitant]
     Active Substance: FLURBIPROFEN AXETIL
  5. LYRICA [Suspect]
     Active Substance: PREGABALIN
     Indication: HYPOAESTHESIA
     Dosage: 25 MG, 2X/DAY (IN THE MORNING AND BEFORE BEDTIME)
     Route: 048
  6. VITAMIN D [Concomitant]
     Active Substance: CHOLECALCIFEROL

REACTIONS (8)
  - Haemorrhage subcutaneous [Unknown]
  - Loss of consciousness [Unknown]
  - Dizziness [Unknown]
  - Haemorrhage [Unknown]
  - Chest pain [Recovered/Resolved]
  - Weight increased [Unknown]
  - Neuralgia [Recovered/Resolved]
  - Contusion [Unknown]
